FAERS Safety Report 25941636 (Version 1)
Quarter: 2025Q4

REPORT INFORMATION
  Report Type: Spontaneous
  Country: GB (occurrence: GB)
  Receive Date: 20251020
  Receipt Date: 20251020
  Transmission Date: 20260118
  Serious: Yes (Other)
  Sender: PFIZER
  Company Number: GB-BIOVITRUM-2025-GB-014047

PATIENT
  Age: 83 Year
  Sex: Female

DRUGS (2)
  1. RITUXIMAB [Suspect]
     Active Substance: RITUXIMAB
     Indication: Diffuse large B-cell lymphoma
     Dosage: UNK
  2. LONCASTUXIMAB TESIRINE-LPYL [Suspect]
     Active Substance: LONCASTUXIMAB TESIRINE-LPYL
     Indication: Diffuse large B-cell lymphoma
     Dosage: UNK
     Route: 065
     Dates: start: 202505

REACTIONS (2)
  - Hypervolaemia [Not Recovered/Not Resolved]
  - Fluid retention [Not Recovered/Not Resolved]
